FAERS Safety Report 17029457 (Version 1)
Quarter: 2019Q4

REPORT INFORMATION
  Report Type: Spontaneous
  Country: CN (occurrence: CN)
  Receive Date: 20191114
  Receipt Date: 20191114
  Transmission Date: 20200122
  Serious: Yes (Other)
  Sender: FDA-Public Use
  Company Number: CN-SA-2019SA310929

PATIENT
  Age: 38 Year
  Sex: Male
  Weight: 47 kg

DRUGS (3)
  1. ELOXATIN [Suspect]
     Active Substance: OXALIPLATIN
     Indication: GASTRIC CANCER
     Dosage: 170 MG, QD
     Route: 041
     Dates: start: 20190507, end: 20190507
  2. ELOXATIN [Suspect]
     Active Substance: OXALIPLATIN
     Indication: LEUKOPENIA
  3. CAPECITABINE. [Concomitant]
     Active Substance: CAPECITABINE
     Dosage: 2 TABLETS QM, 3 TABLETS QN D1-14
     Route: 065

REACTIONS (1)
  - Bone marrow failure [Unknown]

NARRATIVE: CASE EVENT DATE: 20190507
